FAERS Safety Report 4520148-0 (Version None)
Quarter: 2004Q4

REPORT INFORMATION
  Report Type: 
  Country: None (occurrence: None)
  Receive Date: 20041207
  Receipt Date: 20041124
  Transmission Date: 20050328
  Serious: Yes (Other)
  Sender: FDA-Public Use
  Company Number: PHBS2004BR15865

PATIENT
  Age: 27 Year
  Sex: Female

DRUGS (1)
  1. APRESOLINE [Suspect]
     Indication: HYPERTENSION
     Dosage: 25 MG, TID
     Route: 048

REACTIONS (2)
  - DYSPNOEA [None]
  - RESPIRATORY DISORDER [None]
